FAERS Safety Report 7538509-4 (Version None)
Quarter: 2011Q2

REPORT INFORMATION
  Report Type: 
  Country: None (occurrence: None)
  Receive Date: 20110610
  Receipt Date: 20110607
  Transmission Date: 20111010
  Serious: Yes (Other)
  Sender: FDA-Public Use
  Company Number: SE-BRISTOL-MYERS SQUIBB COMPANY-15811136

PATIENT
  Age: 44 Year
  Sex: Female

DRUGS (1)
  1. ABILIFY [Suspect]
     Dates: start: 20100801

REACTIONS (1)
  - VENOUS THROMBOSIS [None]
